FAERS Safety Report 20530583 (Version 1)
Quarter: 2022Q1

REPORT INFORMATION
  Report Type: Spontaneous
  Country: HR (occurrence: HR)
  Receive Date: 20220301
  Receipt Date: 20220301
  Transmission Date: 20220423
  Serious: Yes (Other)
  Sender: FDA-Public Use
  Company Number: None

PATIENT
  Age: 50 Year
  Sex: Male

DRUGS (2)
  1. CLONAZEPAM [Suspect]
     Active Substance: CLONAZEPAM
     Dosage: UNK, DAILY, SEVERAL BOXES OF 0.5MG
     Route: 048
     Dates: start: 202108, end: 202108
  2. PROPRANOLOL HYDROCHLORIDE [Suspect]
     Active Substance: PROPRANOLOL HYDROCHLORIDE
     Dosage: 4000 MG, DAILY, 2 BOXES OF 40MG
     Route: 048
     Dates: start: 202108, end: 202108

REACTIONS (5)
  - Oxygen saturation decreased [Unknown]
  - Hypotension [Unknown]
  - Somnolence [Unknown]
  - Suicide attempt [Unknown]
  - Intentional overdose [Unknown]

NARRATIVE: CASE EVENT DATE: 20210801
